FAERS Safety Report 8952918 (Version 1)
Quarter: 2012Q4

REPORT INFORMATION
  Report Type: 
  Country: US (occurrence: US)
  Receive Date: 20121203
  Receipt Date: 20121203
  Transmission Date: 20130627
  Serious: Yes (Hospitalization)
  Sender: FDA-Public Use
  Company Number: CHPA2012US023973

PATIENT
  Age: 82 Year
  Sex: Male

DRUGS (1)
  1. GAS-X [Suspect]
     Indication: ABDOMINAL DISTENSION
     Dosage: 80 mg, Unk
     Route: 048

REACTIONS (3)
  - Abdominal distension [Unknown]
  - Condition aggravated [Unknown]
  - Therapeutic response decreased [Unknown]
